FAERS Safety Report 14800792 (Version 1)
Quarter: 2018Q2

REPORT INFORMATION
  Report Type: Spontaneous
  Country: US (occurrence: US)
  Receive Date: 20180416
  Receipt Date: 20180416
  Transmission Date: 20180711
  Serious: Yes (Other)
  Sender: FDA-Public Use
  Company Number: None

PATIENT
  Age: 81 Year
  Sex: Male

DRUGS (1)
  1. ALPRAZOLAM 0.5MG [Suspect]
     Active Substance: ALPRAZOLAM
     Indication: INSOMNIA
     Dosage: ?          OTHER DOSE:0.5MG-1MG; HS PRN PO?
     Route: 048
     Dates: start: 20180323, end: 20180401

REACTIONS (4)
  - Product substitution issue [None]
  - Dysgeusia [None]
  - Somnolence [None]
  - Drug effect increased [None]

NARRATIVE: CASE EVENT DATE: 20180401
